FAERS Safety Report 5156393-3 (Version None)
Quarter: 2006Q4

REPORT INFORMATION
  Report Type: 
  Country: None (occurrence: None)
  Receive Date: 20061122
  Receipt Date: 20060606
  Transmission Date: 20070319
  Serious: Yes (Death, Hospitalization)
  Sender: FDA-Public Use
  Company Number: ESWYE700507JUN06

PATIENT
  Sex: Female

DRUGS (12)
  1. ENBREL [Suspect]
     Indication: RHEUMATOID ARTHRITIS
     Route: 058
     Dates: start: 20040511, end: 20050126
  2. RISEDRONIC ACID [Concomitant]
  3. CALCIUM [Concomitant]
  4. VITAMINS [Concomitant]
  5. OMEPRAZOLE [Concomitant]
  6. PILOCARPINE [Concomitant]
  7. BISOPROLOL FUMARATE [Concomitant]
  8. BUDESONIDE [Concomitant]
  9. ENALAPRIL MALEATE [Concomitant]
  10. ACETYLSALICYLIC ACID SRT [Concomitant]
  11. SIMVASTATIN [Concomitant]
  12. CITALOPRAM HYDROBROMIDE [Concomitant]

REACTIONS (7)
  - BONE PAIN [None]
  - BONE SWELLING [None]
  - CARDIOPULMONARY FAILURE [None]
  - DYSPNOEA [None]
  - INFECTION [None]
  - ISCHAEMIA [None]
  - SEPTIC SHOCK [None]
